FAERS Safety Report 18192088 (Version 1)
Quarter: 2020Q3

REPORT INFORMATION
  Report Type: Spontaneous
  Country: US (occurrence: US)
  Receive Date: 20200825
  Receipt Date: 20200825
  Transmission Date: 20201103
  Serious: No
  Sender: FDA-Public Use
  Company Number: US-TEVA-2020-US-1817777

PATIENT
  Sex: Male

DRUGS (1)
  1. PROAIR HFA [Suspect]
     Active Substance: ALBUTEROL SULFATE
     Dosage: PROAIR INHALER
     Route: 065

REACTIONS (4)
  - Cough [Unknown]
  - Pain [Unknown]
  - Throat irritation [Unknown]
  - Drug ineffective [Unknown]
